FAERS Safety Report 24386768 (Version 1)
Quarter: 2024Q4

REPORT INFORMATION
  Report Type: Spontaneous
  Country: US (occurrence: US)
  Receive Date: 20241002
  Receipt Date: 20241002
  Transmission Date: 20250115
  Serious: No
  Sender: ROCHE
  Company Number: US-ROCHE-10000094977

PATIENT

DRUGS (1)
  1. OCREVUS [Suspect]
     Active Substance: OCRELIZUMAB
     Indication: Product used for unknown indication
     Route: 065

REACTIONS (7)
  - Infection [Not Recovered/Not Resolved]
  - Diverticulitis [Unknown]
  - Flatulence [Unknown]
  - Food intolerance [Unknown]
  - Fatigue [Unknown]
  - Large intestine infection [Unknown]
  - Pain [Unknown]
